FAERS Safety Report 25594788 (Version 1)
Quarter: 2025Q3

REPORT INFORMATION
  Report Type: Spontaneous
  Country: JP (occurrence: JP)
  Receive Date: 20250723
  Receipt Date: 20250723
  Transmission Date: 20251021
  Serious: Yes (Disabling, Other)
  Sender: REGENERON
  Company Number: JP-BAYER-2025A070234

PATIENT
  Age: 81 Year
  Sex: Male

DRUGS (2)
  1. EYLEA [Suspect]
     Active Substance: AFLIBERCEPT
     Indication: Age-related macular degeneration
     Route: 031
     Dates: start: 202504, end: 202504
  2. EYLEA [Suspect]
     Active Substance: AFLIBERCEPT
     Route: 031
     Dates: start: 202505, end: 202505

REACTIONS (2)
  - Blindness [Not Recovered/Not Resolved]
  - Retinal pigment epithelial tear [Recovered/Resolved with Sequelae]

NARRATIVE: CASE EVENT DATE: 20250523
